FAERS Safety Report 5823715-7 (Version None)
Quarter: 2008Q3

REPORT INFORMATION
  Report Type: 
  Country: None (occurrence: None)
  Receive Date: 20080725
  Receipt Date: 20080714
  Transmission Date: 20090109
  Serious: Yes (Other)
  Sender: FDA-Public Use
  Company Number: US-PFIZER INC-2008051634

PATIENT
  Sex: Male

DRUGS (5)
  1. DILANTIN [Suspect]
     Indication: CONVULSION
     Dosage: TEXT:DAILY
  2. GEODON [Suspect]
     Indication: AGGRESSION
  3. PHENYTOIN [Suspect]
     Indication: CONVULSION
     Dosage: TEXT:DAILY
  4. PERCOCET [Concomitant]
  5. ANALGESICS [Concomitant]

REACTIONS (13)
  - AGGRESSION [None]
  - ALCOHOL INDUCED PERSISTING DEMENTIA [None]
  - CONFUSIONAL STATE [None]
  - DEPRESSION [None]
  - EYE DISORDER [None]
  - FALL [None]
  - FEELING ABNORMAL [None]
  - GAIT DISTURBANCE [None]
  - ILL-DEFINED DISORDER [None]
  - NON-CONSUMMATION [None]
  - PAIN IN EXTREMITY [None]
  - URINARY TRACT DISORDER [None]
  - WEIGHT DECREASED [None]
